FAERS Safety Report 25618247 (Version 1)
Quarter: 2025Q3

REPORT INFORMATION
  Report Type: Spontaneous
  Country: US (occurrence: US)
  Receive Date: 20250729
  Receipt Date: 20250729
  Transmission Date: 20251020
  Serious: No
  Sender: SANOFI AVENTIS
  Company Number: US-SA-2025SA218497

PATIENT
  Age: 18 Year
  Sex: Male

DRUGS (2)
  1. DUPIXENT [Suspect]
     Active Substance: DUPILUMAB
     Indication: Hypersensitivity
     Dosage: 300 MG, QOW
     Route: 030
     Dates: start: 20250521
  2. DUPIXENT [Suspect]
     Active Substance: DUPILUMAB
     Indication: Asthma

REACTIONS (4)
  - Accidental exposure to product [Unknown]
  - Exposure via skin contact [Unknown]
  - Incorrect route of product administration [Unknown]
  - Product use in unapproved indication [Unknown]

NARRATIVE: CASE EVENT DATE: 20250521
